FAERS Safety Report 15127345 (Version 1)
Quarter: 2018Q3

REPORT INFORMATION
  Report Type: Spontaneous
  Country: US (occurrence: US)
  Receive Date: 20180614
  Receipt Date: 20180614
  Transmission Date: 20181010
  Serious: Yes (Hospitalization)
  Sender: FDA-Public Use
  Company Number: None

PATIENT
  Sex: Male

DRUGS (5)
  1. PHENOBARB [Concomitant]
     Active Substance: PHENOBARBITAL SODIUM
  2. LEVETIRACETA [Concomitant]
  3. POLY?VI?SOL DRO/IRON [Concomitant]
  4. VIGABATRIN. [Suspect]
     Active Substance: VIGABATRIN
     Indication: EPILEPSY
     Dosage: 500 MG 1 PKT AM, 2 PKT PM; ORAL?
     Route: 048
  5. NYSTATIN. [Concomitant]
     Active Substance: NYSTATIN

REACTIONS (1)
  - Hospitalisation [None]
